FAERS Safety Report 4407081-X (Version None)
Quarter: 2004Q3

REPORT INFORMATION
  Report Type: 
  Country: None (occurrence: None)
  Receive Date: 20040720
  Receipt Date: 20040720
  Transmission Date: 20050211
  Serious: Yes (Other)
  Sender: FDA-Public Use
  Company Number: None

PATIENT
  Age: 70 Year
  Sex: Male
  Weight: 79 kg

DRUGS (1)
  1. AK-FLUOR 10% AKORN [Suspect]
     Indication: ANGIOGRAM RETINA
     Dosage: 500 MG ONCE/SINGLE IV
     Route: 042
     Dates: start: 20031216

REACTIONS (7)
  - ANAPHYLACTOID REACTION [None]
  - BLISTER [None]
  - ERYTHEMA [None]
  - FEELING HOT [None]
  - PHARMACEUTICAL PRODUCT COMPLAINT [None]
  - PRURITUS [None]
  - RASH MACULO-PAPULAR [None]
